FAERS Safety Report 12907890 (Version 4)
Quarter: 2018Q3

REPORT INFORMATION
  Report Type: Spontaneous
  Country: BR (occurrence: BR)
  Receive Date: 20161103
  Receipt Date: 20180802
  Transmission Date: 20181010
  Serious: Yes (Life-Threatening, Disabling, Other)
  Sender: FDA-Public Use
  Company Number: BR-B.I. PHARMACEUTICALS,INC./RIDGEFIELD-2016-BI-072365

PATIENT
  Age: 61 Year
  Sex: Male
  Weight: 73 kg

DRUGS (7)
  1. PROLOPA [Concomitant]
     Active Substance: BENSERAZIDE\LEVODOPA
     Indication: PARKINSON^S DISEASE
     Dosage: STRENGTH: 200/50MG
     Route: 048
     Dates: start: 2010
  2. VENLAXIN [Concomitant]
     Active Substance: VENLAFAXINE HYDROCHLORIDE
     Indication: PARKINSON^S DISEASE
     Route: 048
     Dates: start: 2005
  3. MANTIDAN [Concomitant]
     Active Substance: AMANTADINE HYDROCHLORIDE
     Indication: PARKINSON^S DISEASE
     Route: 048
     Dates: start: 2005
  4. SIFROL [Suspect]
     Active Substance: PRAMIPEXOLE
     Indication: PARKINSON^S DISEASE
     Route: 048
     Dates: start: 2005
  5. NIAR [Concomitant]
     Indication: PARKINSON^S DISEASE
     Route: 048
     Dates: start: 2010
  6. STALEVO [Concomitant]
     Active Substance: CARBIDOPA\ENTACAPONE\LEVODOPA
     Indication: PARKINSON^S DISEASE
     Dosage: STRENGHT: 150/37.6/200MG
     Route: 048
     Dates: start: 2005
  7. DOMPERIDONA [Concomitant]
     Indication: PROPHYLAXIS
     Route: 048
     Dates: start: 2005

REACTIONS (7)
  - Dyspnoea [Not Recovered/Not Resolved]
  - Lung disorder [Not Recovered/Not Resolved]
  - Drug ineffective [Not Recovered/Not Resolved]
  - Paralysis [Not Recovered/Not Resolved]
  - Parkinson^s disease [Not Recovered/Not Resolved]
  - Tension [Not Recovered/Not Resolved]
  - Product quality issue [Unknown]

NARRATIVE: CASE EVENT DATE: 20161019
